FAERS Safety Report 24584282 (Version 1)
Quarter: 2024Q4

REPORT INFORMATION
  Report Type: Spontaneous
  Country: US (occurrence: US)
  Receive Date: 20241106
  Receipt Date: 20241106
  Transmission Date: 20250114
  Serious: Yes (Hospitalization)
  Sender: MYLAN
  Company Number: US-MYLANLABS-2024M1099333

PATIENT
  Age: 22 Year
  Sex: Female

DRUGS (20)
  1. PROCHLORPERAZINE [Suspect]
     Active Substance: PROCHLORPERAZINE
     Indication: Nausea
     Dosage: UNK
     Route: 065
  2. PROCHLORPERAZINE [Suspect]
     Active Substance: PROCHLORPERAZINE
     Indication: Vomiting
  3. PROCHLORPERAZINE [Suspect]
     Active Substance: PROCHLORPERAZINE
     Indication: Abdominal distension
  4. PROCHLORPERAZINE [Suspect]
     Active Substance: PROCHLORPERAZINE
     Indication: Abdominal pain
  5. ERYTHROMYCIN [Suspect]
     Active Substance: ERYTHROMYCIN
     Indication: Nausea
     Dosage: UNK
     Route: 065
  6. ERYTHROMYCIN [Suspect]
     Active Substance: ERYTHROMYCIN
     Indication: Vomiting
  7. ERYTHROMYCIN [Suspect]
     Active Substance: ERYTHROMYCIN
     Indication: Abdominal distension
  8. ERYTHROMYCIN [Suspect]
     Active Substance: ERYTHROMYCIN
     Indication: Abdominal pain
  9. ONDANSETRON [Suspect]
     Active Substance: ONDANSETRON
     Indication: Nausea
     Dosage: UNK
     Route: 065
  10. ONDANSETRON [Suspect]
     Active Substance: ONDANSETRON
     Indication: Vomiting
  11. ONDANSETRON [Suspect]
     Active Substance: ONDANSETRON
     Indication: Abdominal distension
  12. ONDANSETRON [Suspect]
     Active Substance: ONDANSETRON
     Indication: Abdominal pain
  13. METOCLOPRAMIDE [Suspect]
     Active Substance: METOCLOPRAMIDE
     Indication: Nausea
     Dosage: UNK
     Route: 065
  14. METOCLOPRAMIDE [Suspect]
     Active Substance: METOCLOPRAMIDE
     Indication: Vomiting
  15. METOCLOPRAMIDE [Suspect]
     Active Substance: METOCLOPRAMIDE
     Indication: Abdominal distension
  16. METOCLOPRAMIDE [Suspect]
     Active Substance: METOCLOPRAMIDE
     Indication: Abdominal pain
  17. DOMPERIDONE [Suspect]
     Active Substance: DOMPERIDONE
     Indication: Nausea
     Dosage: UNK
     Route: 065
  18. DOMPERIDONE [Suspect]
     Active Substance: DOMPERIDONE
     Indication: Vomiting
  19. DOMPERIDONE [Suspect]
     Active Substance: DOMPERIDONE
     Indication: Abdominal distension
  20. DOMPERIDONE [Suspect]
     Active Substance: DOMPERIDONE
     Indication: Abdominal pain

REACTIONS (1)
  - Drug ineffective [Unknown]
